FAERS Safety Report 14560552 (Version 1)
Quarter: 2018Q1

REPORT INFORMATION
  Report Type: Spontaneous
  Country: SA (occurrence: SA)
  Receive Date: 20180222
  Receipt Date: 20180222
  Transmission Date: 20180509
  Serious: Yes (Other)
  Sender: FDA-Public Use
  Company Number: SA-ROCHE-2052684

PATIENT
  Age: 80 Year
  Sex: Female

DRUGS (1)
  1. LUCENTIS [Suspect]
     Active Substance: RANIBIZUMAB
     Indication: VITREOUS HAEMORRHAGE
     Dosage: FORM STRENTH: 10 MG/ML
     Route: 065
     Dates: start: 20171105

REACTIONS (5)
  - Upper respiratory tract infection [Unknown]
  - Haemorrhage [Unknown]
  - Vision blurred [Unknown]
  - Eye pain [Unknown]
  - Endophthalmitis [Unknown]
